FAERS Safety Report 15095669 (Version 1)
Quarter: 2018Q3

REPORT INFORMATION
  Report Type: Report from Study
  Country: None (occurrence: GB)
  Receive Date: 20180702
  Receipt Date: 20180702
  Transmission Date: 20181010
  Serious: Yes (Hospitalization, Other)
  Sender: FDA-Public Use
  Company Number: GB-ABBVIE-18K-167-2404755-00

PATIENT
  Age: 70 Year
  Sex: Male
  Weight: 65 kg

DRUGS (1)
  1. HUMIRA [Suspect]
     Active Substance: ADALIMUMAB
     Indication: ANKYLOSING SPONDYLITIS
     Route: 058
     Dates: start: 20060616

REACTIONS (3)
  - Pelvi-ureteric obstruction [Unknown]
  - Hydronephrosis [Unknown]
  - Transitional cell cancer of the renal pelvis and ureter localised [Unknown]

NARRATIVE: CASE EVENT DATE: 20180430
